FAERS Safety Report 8411622 (Version 2)
Quarter: 2012Q4

REPORT INFORMATION
  Report Type: 
  Country: PL (occurrence: PL)
  Receive Date: 20120217
  Receipt Date: 20121101
  Transmission Date: 20130627
  Serious: Yes (Hospitalization)
  Sender: FDA-Public Use
  Company Number: PL-PFIZER INC-2012011542

PATIENT
  Age: 57 Year
  Sex: Male
  Weight: 90.3 kg

DRUGS (10)
  1. TEMSIROLIMUS [Suspect]
     Indication: MANTLE CELL LYMPHOMA
     Dosage: once weekly (scheduled 175 mg weekly for first 3 weeks, then 75 mg weekly)
     Route: 042
     Dates: start: 20111010
  2. DESIPRAMINE [Suspect]
     Indication: MANTLE CELL LYMPHOMA
     Dosage: 50 mg, weekly for 2 weeks
     Route: 048
     Dates: start: 20111003, end: 20111010
  3. LOZAP [Concomitant]
     Indication: HYPERTENSION ARTERIAL
     Dosage: UNK
     Dates: start: 2010
  4. TULIP [Concomitant]
     Indication: HYPERCHOLESTEROLEMIA
     Dosage: 40 UNK, UNK
     Dates: start: 20111107
  5. TULIP [Concomitant]
     Indication: HYPERTRIGLYCERIDAEMIA
  6. HEVIRAN [Concomitant]
     Indication: PROPHYLAXIS
     Dosage: UNK
     Dates: start: 20111115
  7. HYDROXIZINE [Concomitant]
     Indication: ECZEMA
     Dosage: UNK
     Dates: start: 20111129
  8. ADVANTAN [Concomitant]
     Indication: ECZEMA
     Dosage: UNK
     Dates: start: 20111129
  9. TELFAST [Concomitant]
     Indication: ECZEMA
     Dosage: 180 UNK, UNK
     Dates: start: 20111129
  10. IMOVANE [Concomitant]
     Indication: SLEEPLESSNESS
     Dosage: UNK
     Dates: start: 20111220

REACTIONS (1)
  - Febrile neutropenia [Recovered/Resolved]
